FAERS Safety Report 16980476 (Version 1)
Quarter: 2019Q4

REPORT INFORMATION
  Report Type: Spontaneous
  Country: US (occurrence: US)
  Receive Date: 20191031
  Receipt Date: 20191031
  Transmission Date: 20200122
  Serious: Yes (Hospitalization, Other)
  Sender: FDA-Public Use
  Company Number: US-GLAXOSMITHKLINE-US2019GSK194137

PATIENT
  Age: 61 Year
  Sex: Female

DRUGS (4)
  1. CALTRATE WITH VITAMIN D [Suspect]
     Active Substance: CALCIUM CARBONATE\CHOLECALCIFEROL
     Indication: PRODUCT USED FOR UNKNOWN INDICATION
     Dosage: UNK
  2. VITAMIN D [Suspect]
     Active Substance: VITAMIN D NOS
     Indication: PRODUCT USED FOR UNKNOWN INDICATION
     Dosage: 2000 IU, UNK
  3. MULTIVITAMINS WITH MINERALS [Concomitant]
     Active Substance: MINERALS\VITAMINS
     Indication: PRODUCT USED FOR UNKNOWN INDICATION
     Dosage: UNK
  4. TUMS [Suspect]
     Active Substance: CALCIUM CARBONATE
     Indication: DYSPEPSIA
     Dosage: 2 DF, QD

REACTIONS (12)
  - Calcium intoxication [Unknown]
  - Dysarthria [Unknown]
  - Metabolic alkalosis [Unknown]
  - Muscular weakness [Unknown]
  - Confusional state [Unknown]
  - Hypercalcaemia [Recovered/Resolved]
  - Dry mouth [Unknown]
  - Decreased appetite [Unknown]
  - Gait disturbance [Unknown]
  - Milk-alkali syndrome [Unknown]
  - Nausea [Unknown]
  - Renal failure [Recovered/Resolved]
